FAERS Safety Report 9571567 (Version 1)
Quarter: 2013Q4

REPORT INFORMATION
  Report Type: Spontaneous
  Country: US (occurrence: None)
  Receive Date: 20131001
  Receipt Date: 20131001
  Transmission Date: 20140711
  Serious: No
  Sender: FDA-Public Use
  Company Number: None

PATIENT
  Sex: 0

DRUGS (1)
  1. PHENYLEPHRINE [Suspect]

REACTIONS (3)
  - Serratia test positive [None]
  - Culture positive [None]
  - Product contamination microbial [None]
